FAERS Safety Report 4710598-1 (Version None)
Quarter: 2005Q3

REPORT INFORMATION
  Report Type: 
  Country: None (occurrence: None)
  Receive Date: 20050711
  Receipt Date: 20050211
  Transmission Date: 20060218
  Serious: Yes (Other)
  Sender: FDA-Public Use
  Company Number: PHEH2005US01932

PATIENT
  Sex: Female

DRUGS (6)
  1. ZOMETA [Suspect]
     Dosage: 4 MG, QMO
     Dates: start: 20020801, end: 20030101
  2. AREDIA [Suspect]
     Indication: BREAST CANCER METASTATIC
     Dosage: 90 MG, QMO
     Route: 042
     Dates: start: 20020201, end: 20020701
  3. AREDIA [Suspect]
     Dosage: 90 MG, QMO
     Route: 042
     Dates: start: 20030201, end: 20040901
  4. AREDIA [Suspect]
     Dosage: 60MG Q28D
     Route: 042
     Dates: start: 20040901, end: 20041201
  5. DEXAMETHASONE [Concomitant]
     Indication: PREMEDICATION
     Dosage: 20MG QWK X3
     Route: 042
     Dates: start: 20030901, end: 20031001
  6. TAXOTERE [Concomitant]

REACTIONS (9)
  - BONE DEBRIDEMENT [None]
  - BONE DISORDER [None]
  - FUNGAL INFECTION [None]
  - IMPAIRED HEALING [None]
  - ORAL SURGERY [None]
  - OSTEOMYELITIS ACUTE [None]
  - OSTEONECROSIS [None]
  - TOOTH EXTRACTION [None]
  - WOUND DRAINAGE [None]
